FAERS Safety Report 5199315-1 (Version None)
Quarter: 2006Q4

REPORT INFORMATION
  Report Type: 
  Country: None (occurrence: None)
  Receive Date: 20060919
  Receipt Date: 20060814
  Transmission Date: 20070319
  Serious: Yes (Other)
  Sender: FDA-Public Use
  Company Number: BDI-008515

PATIENT
  Age: 65 Year
  Sex: Male
  Weight: 98 kg

DRUGS (2)
  1. MULTIHANCE [Suspect]
     Indication: AMNESIA
     Dosage: 20 ML ONCE IV
     Route: 042
     Dates: start: 20060808, end: 20060808
  2. MULTIHANCE [Suspect]
     Indication: NUCLEAR MAGNETIC RESONANCE IMAGING BRAIN
     Dosage: 20 ML ONCE IV
     Route: 042
     Dates: start: 20060808, end: 20060808

REACTIONS (6)
  - DEPRESSED LEVEL OF CONSCIOUSNESS [None]
  - DIZZINESS [None]
  - DYSKINESIA [None]
  - HYPERHIDROSIS [None]
  - HYPOTENSION [None]
  - NAUSEA [None]
